FAERS Safety Report 15271621 (Version 3)
Quarter: 2018Q3

REPORT INFORMATION
  Report Type: Report from Study
  Country: CO (occurrence: CO)
  Receive Date: 20180813
  Receipt Date: 20180925
  Transmission Date: 20181010
  Serious: Yes (Hospitalization)
  Sender: FDA-Public Use
  Company Number: PHHY2018CO069509

PATIENT
  Sex: Male
  Weight: 24 kg

DRUGS (2)
  1. JADENU [Suspect]
     Active Substance: DEFERASIROX
     Indication: IRON OVERLOAD
     Dosage: 360 MG, QD
     Route: 048
     Dates: start: 20180104, end: 201802
  2. FOLIC ACID. [Concomitant]
     Active Substance: FOLIC ACID
     Indication: PRODUCT USED FOR UNKNOWN INDICATION
     Route: 065

REACTIONS (6)
  - Bone pain [Unknown]
  - Haemoglobin decreased [Recovering/Resolving]
  - Vomiting [Unknown]
  - Infection [Unknown]
  - Pyrexia [Unknown]
  - White blood cell count increased [Unknown]
